FAERS Safety Report 10037625 (Version 1)
Quarter: 2014Q1

REPORT INFORMATION
  Report Type: Spontaneous
  Country: US (occurrence: None)
  Receive Date: 20140325
  Receipt Date: 20140325
  Transmission Date: 20141002
  Serious: Yes (Other)
  Sender: FDA-Public Use
  Company Number: None

PATIENT
  Age: 34 Year
  Sex: Female
  Weight: 98 kg

DRUGS (4)
  1. CHANTIX 0.5 MG PFIZER [Suspect]
     Indication: SMOKING CESSATION THERAPY
  2. KELNOR 1/35 [Concomitant]
  3. CRESTOR [Concomitant]
  4. PRILOSEC [Concomitant]

REACTIONS (8)
  - Anxiety [None]
  - Depression [None]
  - Aphasia [None]
  - Disturbance in attention [None]
  - Memory impairment [None]
  - Impaired work ability [None]
  - Speech disorder [None]
  - Dysarthria [None]
